FAERS Safety Report 9094107 (Version 1)
Quarter: 2013Q1

REPORT INFORMATION
  Report Type: Spontaneous
  Country: US (occurrence: US)
  Receive Date: 20130219
  Receipt Date: 20130219
  Transmission Date: 20140127
  Serious: Yes (Hospitalization)
  Sender: FDA-Public Use
  Company Number: US-BAYER-2013-020831

PATIENT
  Age: 46 Year
  Sex: Female

DRUGS (7)
  1. YAZ [Suspect]
  2. AMPICILLIN [Concomitant]
  3. CLARITIN [Concomitant]
  4. LUPRON [Concomitant]
     Indication: UTERINE LEIOMYOMA
  5. LUPRON [Concomitant]
     Indication: VAGINAL HAEMORRHAGE
  6. NORVASC [Concomitant]
  7. FERROUS SULFATE [Concomitant]

REACTIONS (3)
  - Pulmonary embolism [Recovered/Resolved]
  - Pelvic venous thrombosis [Recovered/Resolved]
  - Deep vein thrombosis [Recovered/Resolved]
